FAERS Safety Report 9640001 (Version 1)
Quarter: 2013Q4

REPORT INFORMATION
  Report Type: Spontaneous
  Country: CN (occurrence: CN)
  Receive Date: 20131023
  Receipt Date: 20131023
  Transmission Date: 20140711
  Serious: Yes (Other)
  Sender: FDA-Public Use
  Company Number: PHHY2013CN117158

PATIENT
  Age: 42 Year
  Sex: Female

DRUGS (4)
  1. LETROZOLE [Suspect]
     Indication: ABORTION INDUCED
     Dosage: 10 MG (DAY 1, 2 AND 3)
     Route: 048
  2. LETROZOLE [Suspect]
     Indication: OFF LABEL USE
  3. MIFEPRISTONE [Suspect]
     Indication: ABORTION INDUCED
     Dosage: 200 MG (DAY 1)
     Route: 048
  4. MISOPROSTOL [Suspect]
     Indication: ABORTION INDUCED
     Dosage: 800 UG (DAY 3)
     Route: 067

REACTIONS (3)
  - Uterine haemorrhage [Unknown]
  - Abortion incomplete [Unknown]
  - Maternal exposure timing unspecified [Unknown]
